FAERS Safety Report 4806105-5 (Version None)
Quarter: 2005Q4

REPORT INFORMATION
  Report Type: 
  Country: None (occurrence: None)
  Receive Date: 20051021
  Receipt Date: 20051007
  Transmission Date: 20060501
  Serious: Yes (Hospitalization)
  Sender: FDA-Public Use
  Company Number: US-ROCHE-420528

PATIENT
  Age: 54 Year
  Sex: Female

DRUGS (1)
  1. XENICAL [Suspect]
     Indication: LIPIDS INCREASED
     Dosage: OTHER INDICATION: WEIGHT LOSS. PATIENT HAD BEEN ON DRUG FOR OVER 3 YEARS.
     Route: 048

REACTIONS (2)
  - SPINAL DISORDER [None]
  - WEIGHT INCREASED [None]
